FAERS Safety Report 9740938 (Version 1)
Quarter: 2013Q4

REPORT INFORMATION
  Report Type: Spontaneous
  Country: US (occurrence: US)
  Receive Date: 20131209
  Receipt Date: 20131209
  Transmission Date: 20140711
  Serious: No
  Sender: FDA-Public Use
  Company Number: US-BIOGENIDEC-2013BI100575

PATIENT
  Age: 52 Year
  Sex: Male
  Weight: 88 kg

DRUGS (5)
  1. TECFIDERA [Suspect]
     Indication: MULTIPLE SCLEROSIS
     Route: 048
  2. NEXIUM [Concomitant]
     Route: 048
  3. ASPIRIN EC [Concomitant]
     Route: 048
  4. BACLOFEN [Concomitant]
     Route: 048
  5. MEN^S ONE DAILY [Concomitant]

REACTIONS (5)
  - Asthenia [Unknown]
  - Fatigue [Unknown]
  - Paraesthesia [Unknown]
  - Burning sensation [Unknown]
  - Flushing [Unknown]
